FAERS Safety Report 7386346-6 (Version None)
Quarter: 2011Q1

REPORT INFORMATION
  Report Type: 
  Country: None (occurrence: None)
  Receive Date: 20110331
  Receipt Date: 20110318
  Transmission Date: 20110831
  Serious: Yes (Other)
  Sender: FDA-Public Use
  Company Number: PHHY2011CA23347

PATIENT
  Sex: Female

DRUGS (1)
  1. CLOZARIL [Suspect]
     Dosage: UNK
     Dates: start: 20110308, end: 20110318

REACTIONS (2)
  - NEUTROPHIL COUNT DECREASED [None]
  - INFECTIOUS MONONUCLEOSIS [None]
